FAERS Safety Report 4913391-X (Version None)
Quarter: 2006Q1

REPORT INFORMATION
  Report Type: 
  Country: None (occurrence: None)
  Receive Date: 20060210
  Receipt Date: 20060126
  Transmission Date: 20060701
  Serious: Yes (Hospitalization)
  Sender: FDA-Public Use
  Company Number: DSA_27694_2006

PATIENT
  Age: 22 Year
  Sex: Female

DRUGS (3)
  1. TAVOR [Suspect]
     Dosage: 5 MG ONCE PO
     Route: 048
     Dates: start: 20060112, end: 20060112
  2. SEROQUEL [Suspect]
     Dosage: 400 MG ONCE PO
     Route: 048
     Dates: start: 20060112, end: 20060112
  3. STANCYL [Suspect]
     Dosage: DF ONCE PO
     Route: 048
     Dates: start: 20060112, end: 20060112

REACTIONS (5)
  - ARRHYTHMIA [None]
  - COMA [None]
  - MULTIPLE DRUG OVERDOSE [None]
  - SUICIDE ATTEMPT [None]
  - TACHYCARDIA [None]
